FAERS Safety Report 4895869-0 (Version None)
Quarter: 2006Q1

REPORT INFORMATION
  Report Type: 
  Country: None (occurrence: None)
  Receive Date: 20060125
  Receipt Date: 20040127
  Transmission Date: 20060701
  Serious: Yes (Death)
  Sender: FDA-Public Use
  Company Number: FR_040103486

PATIENT
  Age: 73 Year
  Sex: Male
  Weight: 74 kg

DRUGS (6)
  1. VANCOMYCIN [Suspect]
     Dosage: 1500 MG/DAY
     Dates: start: 20031024, end: 20031028
  2. TIENAM [Concomitant]
  3. OMEPRAZOLE [Concomitant]
  4. TAZOCILLINE [Concomitant]
  5. FLUCONAZOLE [Concomitant]
  6. FUROSEMIDE [Concomitant]

REACTIONS (1)
  - TOXIC EPIDERMAL NECROLYSIS [None]
